FAERS Safety Report 10678961 (Version 1)
Quarter: 2014Q4

REPORT INFORMATION
  Report Type: Spontaneous
  Country: US (occurrence: None)
  Receive Date: 20141224
  Receipt Date: 20141224
  Transmission Date: 20150529
  Serious: Yes (Death)
  Sender: FDA-Public Use
  Company Number: None

PATIENT
  Age: 41 Year
  Sex: Male

DRUGS (22)
  1. PANTOPRAZOLE [Concomitant]
     Active Substance: PANTOPRAZOLE SODIUM
  2. HYDROXYCHLOR [Concomitant]
     Active Substance: HYDROXYCHLOROQUINE
  3. FUROSEMIDE. [Concomitant]
     Active Substance: FUROSEMIDE
  4. NYSTATIN CRE [Concomitant]
  5. XARELTO [Concomitant]
     Active Substance: RIVAROXABAN
  6. LEVOFLOXACIN ??? [Concomitant]
  7. DIPHENHYDRAMINE 50 MG/ML [Suspect]
     Active Substance: DIPHENHYDRAMINE
     Indication: HAEMOLYTIC URAEMIC SYNDROME
     Dosage: 25MG, DAY 1 AND 15, INFUSED INTERVENOUSLY?
     Dates: start: 20141125, end: 20141223
  8. CARVEDILOL. [Concomitant]
     Active Substance: CARVEDILOL
  9. NORCO [Concomitant]
     Active Substance: ACETAMINOPHEN\HYDROCODONE BITARTRATE
  10. HYDRALAZINE [Concomitant]
     Active Substance: HYDRALAZINE HYDROCHLORIDE
  11. XARELTO [Concomitant]
     Active Substance: RIVAROXABAN
  12. DIGOXIN. [Concomitant]
     Active Substance: DIGOXIN
  13. MYCOPHENOLAT [Concomitant]
  14. CIPROFLOXACIN. [Concomitant]
     Active Substance: CIPROFLOXACIN
  15. SPIRONOLACT [Concomitant]
  16. LEVOTHYROXIN [Concomitant]
     Active Substance: LEVOTHYROXINE
  17. FERROUS FUM [Concomitant]
  18. SOLIRIS [Suspect]
     Active Substance: ECULIZUMAB
     Indication: HAEMOLYTIC URAEMIC SYNDROME
     Dosage: 1200 MG, DAY 1 AND 15, INFUSED INTERVENOUSLY?
     Dates: start: 20141125, end: 20141223
  19. LOSARTAN POT [Concomitant]
  20. WARFARIN SOD [Concomitant]
  21. HYDRALAZINE [Concomitant]
     Active Substance: HYDRALAZINE HYDROCHLORIDE
  22. PREDNISOLONE. [Concomitant]
     Active Substance: PREDNISOLONE

REACTIONS (1)
  - Death [None]

NARRATIVE: CASE EVENT DATE: 20141223
